FAERS Safety Report 5914546-8 (Version None)
Quarter: 2008Q4

REPORT INFORMATION
  Report Type: 
  Country: None (occurrence: None)
  Receive Date: 20081008
  Receipt Date: 20080922
  Transmission Date: 20090506
  Serious: Yes (Hospitalization)
  Sender: FDA-Public Use
  Company Number: DSA_32445_2008

PATIENT
  Age: 57 Year
  Sex: Female
  Weight: 85 kg

DRUGS (1)
  1. ENALAPRIL MALEATE [Suspect]
     Indication: HYPERTENSION
     Dosage: 10 MG BID

REACTIONS (10)
  - CHEST PAIN [None]
  - DEEP VEIN THROMBOSIS [None]
  - HYPOPERFUSION [None]
  - INTRACARDIAC THROMBUS [None]
  - LUNG DISORDER [None]
  - PULMONARY EMBOLISM [None]
  - SYNCOPE [None]
  - TRICUSPID VALVE INCOMPETENCE [None]
  - UTERINE LEIOMYOMA [None]
  - VENOUS INSUFFICIENCY [None]
